FAERS Safety Report 9197977 (Version 1)
Quarter: 2013Q1

REPORT INFORMATION
  Report Type: Spontaneous
  Country: US (occurrence: US)
  Receive Date: 20130328
  Receipt Date: 20130328
  Transmission Date: 20140127
  Serious: Yes (Other)
  Sender: FDA-Public Use
  Company Number: US-ABBOTT-13P-163-1066008-00

PATIENT
  Sex: Male

DRUGS (3)
  1. HUMIRA [Suspect]
     Indication: CROHN^S DISEASE
     Dosage: 160 MG LOADING DOSE
     Route: 058
     Dates: start: 20130318, end: 20130318
  2. PENTASA [Concomitant]
     Indication: CROHN^S DISEASE
  3. STEROIDS [Concomitant]
     Indication: CROHN^S DISEASE

REACTIONS (3)
  - Movement disorder [Not Recovered/Not Resolved]
  - Aphasia [Not Recovered/Not Resolved]
  - Attention-seeking behaviour [Unknown]
